FAERS Safety Report 13333655 (Version 3)
Quarter: 2017Q2

REPORT INFORMATION
  Report Type: Report from Study
  Country: BR (occurrence: BR)
  Receive Date: 20170313
  Receipt Date: 20170511
  Transmission Date: 20170830
  Serious: Yes (Hospitalization, Other)
  Sender: FDA-Public Use
  Company Number: PHHY2017BR037179

PATIENT
  Sex: Male
  Weight: 67 kg

DRUGS (4)
  1. EXELON PATCH [Suspect]
     Active Substance: RIVASTIGMINE
     Indication: DEMENTIA ALZHEIMER^S TYPE
     Dosage: 4.6 MG, QD (PATCH 5 CM2)
     Route: 062
  2. HALDOL [Concomitant]
     Active Substance: HALOPERIDOL
     Indication: PRODUCT USED FOR UNKNOWN INDICATION
     Route: 065
  3. GLIBENCLAMIDE [Concomitant]
     Active Substance: GLYBURIDE
     Indication: PRODUCT USED FOR UNKNOWN INDICATION
     Route: 065
  4. METFORMIN [Concomitant]
     Active Substance: METFORMIN HYDROCHLORIDE
     Indication: PRODUCT USED FOR UNKNOWN INDICATION
     Route: 065

REACTIONS (27)
  - Hallucination [Recovering/Resolving]
  - Application site pain [Recovering/Resolving]
  - Blood pressure increased [Unknown]
  - Malaise [Recovering/Resolving]
  - Body height decreased [Unknown]
  - Fall [Unknown]
  - Aggression [Recovering/Resolving]
  - Hyperaesthesia [Recovering/Resolving]
  - Application site irritation [Recovering/Resolving]
  - Injury [Recovering/Resolving]
  - Sleep disorder [Recovering/Resolving]
  - Limb injury [Unknown]
  - Lack of application site rotation [Unknown]
  - Application site injury [Recovering/Resolving]
  - Restlessness [Recovering/Resolving]
  - Abnormal behaviour [Unknown]
  - Drug effect decreased [Unknown]
  - Haemorrhage [Recovering/Resolving]
  - Eating disorder [Recovering/Resolving]
  - Memory impairment [Recovering/Resolving]
  - Nightmare [Recovering/Resolving]
  - Incorrect drug administration duration [Unknown]
  - Asthenia [Recovering/Resolving]
  - Contusion [Recovering/Resolving]
  - Condition aggravated [Unknown]
  - Head injury [Unknown]
  - Drug prescribing error [Unknown]
